FAERS Safety Report 11432866 (Version 1)
Quarter: 2015Q3

REPORT INFORMATION
  Report Type: Spontaneous
  Country: US (occurrence: US)
  Receive Date: 20150828
  Receipt Date: 20150828
  Transmission Date: 20151125
  Serious: No
  Sender: FDA-Public Use
  Company Number: US-GLAXOSMITHKLINE-US2015120734

PATIENT

DRUGS (1)
  1. ABREVA [Suspect]
     Active Substance: DOCOSANOL
     Indication: APHTHOUS ULCER
     Dosage: UNK

REACTIONS (6)
  - Condition aggravated [Unknown]
  - Pain [Unknown]
  - Decreased appetite [Unknown]
  - Aphthous ulcer [Unknown]
  - Drug administration error [Unknown]
  - Drug ineffective [Unknown]
